FAERS Safety Report 6977957-8 (Version None)
Quarter: 2010Q3

REPORT INFORMATION
  Report Type: 
  Country: None (occurrence: None)
  Receive Date: 20100913
  Receipt Date: 20100901
  Transmission Date: 20110219
  Serious: Yes (Hospitalization)
  Sender: FDA-Public Use
  Company Number: GB-PFIZER INC-2008080224

PATIENT
  Age: 63 Year
  Sex: Male

DRUGS (1)
  1. SUNITINIB MALATE [Suspect]
     Indication: RENAL CELL CARCINOMA
     Dosage: 12.5 MG, 1X/DAY
     Route: 048
     Dates: start: 20060804

REACTIONS (2)
  - CONFUSIONAL STATE [None]
  - FALL [None]
